FAERS Safety Report 7399831-8 (Version None)
Quarter: 2011Q2

REPORT INFORMATION
  Report Type: 
  Country: None (occurrence: None)
  Receive Date: 20110407
  Receipt Date: 20110323
  Transmission Date: 20111010
  Serious: Yes (Other)
  Sender: FDA-Public Use
  Company Number: US-JNJFOC-20110301777

PATIENT
  Sex: Female
  Weight: 74.39 kg

DRUGS (6)
  1. ACETAMINOPHEN [Concomitant]
     Indication: PREMEDICATION
  2. REMICADE [Suspect]
     Indication: COLITIS ULCERATIVE
     Dosage: 5MG/KG
     Route: 042
  3. STEROIDS NOS [Concomitant]
     Indication: PREMEDICATION
  4. REMICADE [Suspect]
     Route: 042
  5. ZYRTEC [Concomitant]
     Indication: PREMEDICATION
  6. PROTONIX [Concomitant]

REACTIONS (8)
  - CATATONIA [None]
  - ARTHRALGIA [None]
  - HEADACHE [None]
  - MUSCLE SPASMS [None]
  - IMMUNOSUPPRESSANT DRUG LEVEL DECREASED [None]
  - ANTIBODY TEST POSITIVE [None]
  - INFUSION RELATED REACTION [None]
  - FLUSHING [None]
